FAERS Safety Report 21374512 (Version 1)
Quarter: 2022Q3

REPORT INFORMATION
  Report Type: Report from Study
  Country: AU (occurrence: None)
  Receive Date: 20220926
  Receipt Date: 20220926
  Transmission Date: 20221027
  Serious: No
  Sender: FDA-Public Use
  Company Number: Unknown

PATIENT
  Age: 58 Year

DRUGS (1)
  1. ATORVASTATIN CALCIUM [Suspect]
     Active Substance: ATORVASTATIN CALCIUM
     Indication: Osteoarthritis
     Route: 065

REACTIONS (2)
  - Myalgia [Unknown]
  - Off label use [Unknown]
